FAERS Safety Report 6898416-7 (Version None)
Quarter: 2010Q3

REPORT INFORMATION
  Report Type: 
  Country: None (occurrence: None)
  Receive Date: 20100802
  Receipt Date: 20071005
  Transmission Date: 20110219
  Serious: No
  Sender: FDA-Public Use
  Company Number: US-PFIZER INC-2007042210

PATIENT
  Sex: Female
  Weight: 54.43 kg

DRUGS (13)
  1. LYRICA [Suspect]
     Indication: FIBROMYALGIA
     Route: 048
     Dates: start: 20070101
  2. CELEBREX [Concomitant]
     Route: 048
  3. CILEST [Concomitant]
     Dosage: 24 EVERY 1 MONTHS
  4. AMBIEN [Concomitant]
     Route: 048
  5. SOMA [Concomitant]
     Route: 048
  6. FLEXERIL [Concomitant]
     Route: 048
  7. FISH OIL [Concomitant]
     Route: 048
  8. MULTI-VITAMINS [Concomitant]
     Route: 048
  9. TURMERIC [Concomitant]
     Route: 048
  10. CALCIUM WITH VITAMIN D [Concomitant]
     Route: 048
  11. ASCORBIC ACID [Concomitant]
     Route: 048
  12. MAGNESIUM [Concomitant]
     Route: 048
  13. CILEST [Concomitant]

REACTIONS (7)
  - DISTURBANCE IN ATTENTION [None]
  - DIZZINESS [None]
  - FEELING ABNORMAL [None]
  - FIBROMYALGIA [None]
  - IMPAIRED DRIVING ABILITY [None]
  - STRABISMUS [None]
  - VISION BLURRED [None]
